FAERS Safety Report 7190421-9 (Version None)
Quarter: 2010Q4

REPORT INFORMATION
  Report Type: 
  Country: None (occurrence: None)
  Receive Date: 20101223
  Receipt Date: 20101213
  Transmission Date: 20110411
  Serious: Yes (Hospitalization, Other)
  Sender: FDA-Public Use
  Company Number: US-ELI_LILLY_AND_COMPANY-US201012003510

PATIENT
  Sex: Male

DRUGS (5)
  1. HUMALOG MIX 75/25 [Suspect]
     Indication: DIABETES MELLITUS
     Dosage: 31 U, EACH MORNING
     Dates: start: 20000701
  2. HUMALOG MIX 75/25 [Suspect]
     Dosage: 24 U, EACH EVENING
     Dates: start: 20000701
  3. HUMALOG MIX 75/25 [Suspect]
     Dosage: 31 U, EACH MORNING
     Dates: start: 20000701
  4. HUMALOG MIX 75/25 [Suspect]
     Dosage: 24 U, EACH EVENING
     Dates: start: 20000701
  5. CYCLOSPORINE [Concomitant]

REACTIONS (15)
  - BLOOD GLUCOSE DECREASED [None]
  - BLOOD GLUCOSE INCREASED [None]
  - BLOOD PRESSURE ABNORMAL [None]
  - CARDIAC DISORDER [None]
  - DRUG INEFFECTIVE [None]
  - FALL [None]
  - GLYCOSYLATED HAEMOGLOBIN INCREASED [None]
  - JOINT DISLOCATION [None]
  - LOSS OF CONSCIOUSNESS [None]
  - OPEN WOUND [None]
  - RASH PRURITIC [None]
  - RIB FRACTURE [None]
  - SKIN DISCOLOURATION [None]
  - UPPER LIMB FRACTURE [None]
  - URTICARIA [None]
